FAERS Safety Report 12177249 (Version 1)
Quarter: 2016Q1

REPORT INFORMATION
  Report Type: Other
  Country: DE (occurrence: DE)
  Receive Date: 20160315
  Receipt Date: 20160315
  Transmission Date: 20160526
  Serious: Yes (Other)
  Sender: FDA-Public Use
  Company Number: DE-LUPIN PHARMACEUTICALS INC.-E2B_00004611

PATIENT
  Sex: Male
  Weight: 3.9 kg

DRUGS (5)
  1. SERTRALINE [Suspect]
     Active Substance: SERTRALINE HYDROCHLORIDE
     Indication: DEPRESSION
     Route: 064
     Dates: start: 20140805, end: 20150512
  2. XANAFLU [Concomitant]
     Active Substance: INFLUENZA VIRUS VACCINE
     Indication: IMMUNISATION
     Route: 064
     Dates: start: 20141113, end: 20141113
  3. MONURIL 3000 [Concomitant]
     Indication: URINARY TRACT INFECTION
     Route: 064
  4. CLOTRIMAZOLE. [Concomitant]
     Active Substance: CLOTRIMAZOLE
     Indication: VULVOVAGINAL MYCOTIC INFECTION
     Dosage: SEVERAL TIMES BETWEEN WEEK 11 AND 20.
     Route: 064
  5. FEMIBION SCHWANGERSCHAFT 1 [Concomitant]
     Indication: PROPHYLAXIS OF NEURAL TUBE DEFECT
     Route: 064
     Dates: start: 20140805, end: 20150512

REACTIONS (2)
  - Agitation neonatal [Recovered/Resolved]
  - Foetal exposure during pregnancy [Unknown]
